FAERS Safety Report 13181452 (Version 2)
Quarter: 2017Q3

REPORT INFORMATION
  Report Type: Spontaneous
  Country: US (occurrence: US)
  Receive Date: 20170202
  Receipt Date: 20170728
  Transmission Date: 20171127
  Serious: No
  Sender: FDA-Public Use
  Company Number: US-PFIZER INC-2017044691

PATIENT
  Age: 19 Year
  Sex: Female

DRUGS (1)
  1. CORTEF [Suspect]
     Active Substance: HYDROCORTISONE
     Dosage: 10 MG, UNK

REACTIONS (3)
  - Malaise [Unknown]
  - Blood test abnormal [Unknown]
  - Intentional product use issue [Unknown]
